FAERS Safety Report 10170492 (Version 1)
Quarter: 2014Q2

REPORT INFORMATION
  Report Type: Spontaneous
  Country: US (occurrence: US)
  Receive Date: 20140513
  Receipt Date: 20140513
  Transmission Date: 20141212
  Serious: No
  Sender: FDA-Public Use
  Company Number: US-GILEAD-2014-0102085

PATIENT
  Age: 58 Year
  Sex: Male

DRUGS (2)
  1. SOVALDI [Suspect]
     Indication: HEPATITIS C
     Dosage: 400 MG, UNK
     Route: 048
     Dates: start: 201404
  2. RIBAVIRIN [Concomitant]
     Dosage: 1200 MG, UNK
     Route: 048

REACTIONS (2)
  - Anger [Unknown]
  - Agitation [Unknown]
